FAERS Safety Report 8361325-0 (Version None)
Quarter: 2012Q2

REPORT INFORMATION
  Report Type: 
  Country: None (occurrence: None)
  Receive Date: 20120515
  Receipt Date: 20110801
  Transmission Date: 20120825
  Serious: No
  Sender: FDA-Public Use
  Company Number: US-ALEXION-A201101178

PATIENT
  Sex: Female
  Weight: 61 kg

DRUGS (20)
  1. SOLIRIS [Suspect]
     Dosage: 900 MG Q 12 DAYS
     Route: 042
     Dates: start: 20080328
  2. VITAMIN D [Concomitant]
     Dosage: 1000 IU, BID
     Route: 048
  3. KLONOPIN [Concomitant]
     Indication: ANXIETY
     Dosage: 0.25 MG TO 0.5 MG, PRN
  4. PSYLLIUM HYDROPHILIC MUCILLOID [Concomitant]
     Dosage: 1 TS, QD
  5. DOXYLAMINE SUCCINATE [Concomitant]
     Indication: SLEEP DISORDER THERAPY
     Dosage: 25 MG, QD
  6. ACETAMINOPHEN [Concomitant]
     Indication: PAIN
     Dosage: 1000 MG, PRN
  7. SOLIRIS [Suspect]
     Indication: PAROXYSMAL NOCTURNAL HAEMOGLOBINURIA
     Dosage: 600 MG, UNK
     Route: 042
     Dates: start: 20080229, end: 20080301
  8. LACTOBACILLUS NOS [Concomitant]
     Dosage: 1 TAB, QD
  9. SIMETHICONE [Concomitant]
     Dosage: 125 MG, PRN
     Route: 048
  10. PROCHLORPERAZINE [Concomitant]
     Indication: NAUSEA
     Dosage: 10 MG, BEFORE ADMINISTERING SOLIRIS
  11. COUMADIN [Concomitant]
     Dosage: 7.5 MG M/WF; 10 MG SAT/T/TH/SUN
     Route: 048
  12. VITAMIN B COMPLEX CAP [Concomitant]
     Dosage: UNK, QD
     Route: 048
  13. FISH OIL [Concomitant]
     Dosage: 1000 MG, QD
     Route: 048
  14. CALCIUM CARBONATE [Concomitant]
     Indication: ANTACID THERAPY
     Dosage: 2000 MG, PRN
  15. MULTI-VITAMIN [Concomitant]
     Dosage: UNK, QD
     Route: 048
  16. FOLIC ACID [Concomitant]
     Dosage: 1 MG, QD
     Route: 048
  17. DEXTROSE [Concomitant]
     Indication: HYPOGLYCAEMIA
     Dosage: UNK, PRN
  18. RESTASIS [Concomitant]
     Indication: DRY EYE
     Dosage: UNK, BID
     Route: 031
  19. LOESTRIN 1.5/30 [Concomitant]
     Indication: MENSTRUAL CYCLE MANAGEMENT
     Dosage: UNK, QD
     Route: 048
  20. ENZYME PREPARATIONS [Concomitant]
     Indication: SUPPLEMENTATION THERAPY
     Dosage: 600 GALU, PRN BEFORE A MEAL

REACTIONS (3)
  - BLOOD BILIRUBIN INCREASED [None]
  - WHITE BLOOD CELL COUNT DECREASED [None]
  - BLOOD LACTATE DEHYDROGENASE INCREASED [None]
